FAERS Safety Report 14122744 (Version 2)
Quarter: 2017Q4

REPORT INFORMATION
  Report Type: Spontaneous
  Country: DK (occurrence: DK)
  Receive Date: 20171025
  Receipt Date: 20171103
  Transmission Date: 20180321
  Serious: Yes (Life-Threatening, Hospitalization, Other)
  Sender: FDA-Public Use
  Company Number: DK-MYLANLABS-2017M1067193

PATIENT
  Age: 64 Year
  Sex: Female

DRUGS (11)
  1. OXYCODON HCL ACTAVIS [Suspect]
     Active Substance: OXYCODONE HYDROCHLORIDE
     Indication: PAIN
     Dosage: DOSIS: 3 TABLETTER MORGEN, 3 TABLETTER AFTEN OG 2 TABLETTER INDEN SENGETID. STYRKE: 10 MG.
     Route: 048
     Dates: start: 20131020
  2. KLORZOXAZON [Suspect]
     Active Substance: CHLORZOXAZONE
     Indication: MUSCLE RELAXANT THERAPY
     Dosage: STYRKE: 250 MG.
     Route: 048
     Dates: start: 20161118
  3. TAFIL                              /00595201/ [Suspect]
     Active Substance: ALPRAZOLAM
     Indication: ANXIETY DISORDER
     Dosage: STYRKE: 1 MG.
     Route: 048
     Dates: start: 20160430
  4. MIRTAZAPIN HEXAL [Suspect]
     Active Substance: MIRTAZAPINE
     Indication: DEPRESSION
     Dosage: DOSIS: 2 TABLETTER FOR SENGETID. STYRKE: 15 MG.
     Route: 048
     Dates: start: 20160430
  5. METHADON ALTERNOVA [Suspect]
     Active Substance: METHADONE HYDROCHLORIDE
     Indication: PAIN
     Dosage: STYRKE: 5 MG.
     Route: 048
     Dates: start: 201706
  6. QUETIAPIN SANDOZ [Suspect]
     Active Substance: QUETIAPINE
     Indication: DEPRESSION
     Dosage: DOSIS: 1 TABLET OM MORGENEN, 1 TABLET MIDDAG, 3 TABLETTER INDEN SENGETID. STYRKE: 25 MG.
     Route: 048
     Dates: start: 20160506
  7. PINEX                              /00020001/ [Concomitant]
     Active Substance: ACETAMINOPHEN
     Indication: PAIN
     Dosage: DOSIS: 2 TABLETTER EFTER BEHOV. MAXIMUM 4 GANGE DAGLIGT. STYRKE: 500 MG.
     Route: 048
     Dates: start: 20140804
  8. BACLOFEN MYLAN [Suspect]
     Active Substance: BACLOFEN
     Indication: MUSCLE RELAXANT THERAPY
     Dosage: STYRKE: 10 MG.
     Route: 048
     Dates: start: 20170519
  9. CLARITHROMYCIN TEVA [Suspect]
     Active Substance: CLARITHROMYCIN
     Indication: PNEUMONIA
     Dosage: STYRKE: 250 MG.
     Route: 048
     Dates: start: 20170721, end: 20170726
  10. EUTHYROX [Concomitant]
     Active Substance: LEVOTHYROXINE SODIUM
     Indication: HYPOTHYROIDISM
     Dosage: DOSIS: 125 MIKROGRAM OM MORGENEN. STYRKE: 100 MIKROGRAM + 25 MIKROGRAM
     Route: 048
     Dates: start: 20140427
  11. MEDILAX                            /00163401/ [Concomitant]
     Indication: CONSTIPATION
     Dosage: STYRKE: 667 MG/ML.
     Route: 048
     Dates: start: 20160509

REACTIONS (7)
  - Accidental overdose [Recovered/Resolved]
  - Respiratory depression [Recovered/Resolved]
  - Respiratory depression [Recovered/Resolved]
  - Respiratory depression [Recovered/Resolved]
  - Loss of consciousness [Recovered/Resolved]
  - Loss of consciousness [Recovered/Resolved]
  - Loss of consciousness [Recovered/Resolved]

NARRATIVE: CASE EVENT DATE: 20170708
